FAERS Safety Report 14474901 (Version 5)
Quarter: 2018Q2

REPORT INFORMATION
  Report Type: Spontaneous
  Country: FR (occurrence: FR)
  Receive Date: 20180201
  Receipt Date: 20180427
  Transmission Date: 20180711
  Serious: Yes (Death, Hospitalization, Other)
  Sender: FDA-Public Use
  Company Number: FR-PFIZER INC-2018040439

PATIENT
  Age: 80 Year
  Sex: Male
  Weight: 81 kg

DRUGS (6)
  1. FLUOROURACIL ACCORD /00098801/ [Suspect]
     Active Substance: FLUOROURACIL
     Indication: INTESTINAL ADENOCARCINOMA
     Dosage: 3800 MG, CYCLIC
     Route: 042
     Dates: start: 20170907, end: 20171102
  2. TAREG [Concomitant]
     Active Substance: VALSARTAN
     Dosage: UNK
  3. MICARDIS [Concomitant]
     Active Substance: TELMISARTAN
     Indication: HYPERTENSION
     Dosage: 1 DF, 1X/DAY
     Route: 048
  4. OXALIPLATIN. [Suspect]
     Active Substance: OXALIPLATIN
     Indication: INTESTINAL ADENOCARCINOMA
     Dosage: 165 MG, CYCLIC
     Route: 042
     Dates: start: 20170907, end: 20171102
  5. BISOCE [Concomitant]
     Active Substance: BISOPROLOL
     Indication: CARDIAC FAILURE
     Dosage: 1 DF, 1X/DAY
     Route: 048
  6. ELIQUIS [Concomitant]
     Active Substance: APIXABAN
     Indication: ATRIAL FIBRILLATION
     Dosage: 2 DF, 1X/DAY
     Route: 048

REACTIONS (3)
  - Multiple organ dysfunction syndrome [Fatal]
  - Pneumonitis chemical [Fatal]
  - Circulatory collapse [Unknown]

NARRATIVE: CASE EVENT DATE: 20171123
